FAERS Safety Report 5977550-X (Version None)
Quarter: 2008Q4

REPORT INFORMATION
  Report Type: 
  Country: None (occurrence: None)
  Receive Date: 20081125
  Receipt Date: 20081113
  Transmission Date: 20090506
  Serious: Yes (Hospitalization)
  Sender: FDA-Public Use
  Company Number: 2008-GWUS-0915

PATIENT
  Age: 51 Year
  Sex: Female

DRUGS (1)
  1. ALDARA [Suspect]
     Indication: BASAL CELL CARCINOMA
     Dosage: APPLICATION - 5XW - TOPICAL
     Route: 061
     Dates: start: 20081001, end: 20081104

REACTIONS (6)
  - BLOOD THYROID STIMULATING HORMONE INCREASED [None]
  - DIARRHOEA [None]
  - DYSPHONIA [None]
  - HYPOVENTILATION [None]
  - NASAL DRYNESS [None]
  - REFLUX OESOPHAGITIS [None]
